FAERS Safety Report 5110524-X (Version None)
Quarter: 2006Q3

REPORT INFORMATION
  Report Type: 
  Country: None (occurrence: None)
  Receive Date: 20060921
  Receipt Date: 20060918
  Transmission Date: 20061208
  Serious: Yes (Life-Threatening)
  Sender: FDA-Public Use
  Company Number: US-BOEHRINGER INGELHEIM PHARMACEUTICALS, INC.-2006-DE-05027GD

PATIENT
  Sex: Male

DRUGS (2)
  1. MIRAPEX [Suspect]
     Indication: PARKINSON'S DISEASE
     Dates: end: 20050701
  2. REQUIP [Suspect]
     Indication: PARKINSON'S DISEASE
     Dates: end: 20050701

REACTIONS (3)
  - CONDITION AGGRAVATED [None]
  - PATHOLOGICAL GAMBLING [None]
  - SUDDEN ONSET OF SLEEP [None]
